FAERS Safety Report 14879221 (Version 5)
Quarter: 2019Q1

REPORT INFORMATION
  Report Type: Report from Study
  Country: BE (occurrence: BE)
  Receive Date: 20180511
  Receipt Date: 20190307
  Transmission Date: 20190417
  Serious: Yes (Hospitalization)
  Sender: FDA-Public Use
  Company Number: BE-SA-2017SA236993

PATIENT
  Age: 71 Year
  Sex: Female
  Weight: 58 kg

DRUGS (21)
  1. AFLIBERCEPT [Suspect]
     Active Substance: AFLIBERCEPT
     Dosage: UNK UNK,QCY
     Route: 042
     Dates: start: 20171004, end: 20171004
  2. FOLINIC ACID [Suspect]
     Active Substance: LEUCOVORIN
     Dosage: UNK UNK, QCY
     Route: 042
     Dates: start: 20171004, end: 20171004
  3. IMODIUM [Concomitant]
     Active Substance: LOPERAMIDE HYDROCHLORIDE
     Dosage: 10 MG,PRN
     Route: 048
     Dates: start: 20171018, end: 20180128
  4. PROLIA [Concomitant]
     Active Substance: DENOSUMAB
     Dosage: 1 ML,UNK
     Route: 058
     Dates: end: 20180122
  5. BETMIGA [Concomitant]
     Active Substance: MIRABEGRON
     Dosage: 50 MG,QD
     Route: 048
     Dates: start: 20171018, end: 20181107
  6. CACIT D3 [Concomitant]
     Active Substance: CALCIUM\CHOLECALCIFEROL
     Dosage: 1000 MG,QD
     Route: 048
  7. ATROPINE. [Concomitant]
     Active Substance: ATROPINE
     Dosage: .25 MG,PRN
     Route: 058
     Dates: start: 20171004, end: 20180103
  8. ALOXI [Concomitant]
     Active Substance: PALONOSETRON HYDROCHLORIDE
     Dosage: .25 MG,PRN
     Route: 042
     Dates: start: 20171004, end: 20180103
  9. AFLIBERCEPT [Suspect]
     Active Substance: AFLIBERCEPT
     Indication: COLORECTAL CANCER METASTATIC
     Dosage: UNK UNK,QCY
     Route: 042
     Dates: start: 20171108, end: 20171108
  10. FLUOROURACIL. [Suspect]
     Active Substance: FLUOROURACIL
     Indication: COLORECTAL CANCER METASTATIC
     Dosage: 650 MG, QCY
     Route: 040
     Dates: start: 20171108, end: 20171108
  11. IRINOTECAN [Suspect]
     Active Substance: IRINOTECAN
     Indication: COLORECTAL CANCER METASTATIC
     Dosage: 290 MG, QCY
     Route: 042
     Dates: start: 20171108, end: 20171108
  12. FEROGRAD [Concomitant]
     Active Substance: ASCORBIC ACID\FERROUS SULFATE
     Dosage: 525 MG,QD
     Route: 048
     Dates: start: 20161109, end: 20170122
  13. DEXAMETHASONE. [Concomitant]
     Active Substance: DEXAMETHASONE
     Dosage: 10 MG,PRN
     Route: 042
     Dates: start: 20171004, end: 20180103
  14. FLUOROURACIL. [Suspect]
     Active Substance: FLUOROURACIL
     Dosage: UNK UNK, QCY
     Route: 040
     Dates: start: 20171004, end: 20171004
  15. IRINOTECAN [Suspect]
     Active Substance: IRINOTECAN
     Dosage: UNK UNK, QCY
     Route: 042
     Dates: start: 20171004, end: 20171004
  16. DAFALGAN FORTE [Concomitant]
     Dosage: 4 G,PRN
     Route: 048
     Dates: start: 20161109, end: 20180118
  17. FLUOROURACIL. [Suspect]
     Active Substance: FLUOROURACIL
     Dosage: 3930 MG, QCY
     Route: 041
     Dates: start: 20171108, end: 20171108
  18. FLUOROURACIL. [Suspect]
     Active Substance: FLUOROURACIL
     Dosage: UNK UNK, QCY
     Route: 041
     Dates: start: 20171004, end: 20171004
  19. FOLINIC ACID [Suspect]
     Active Substance: LEUCOVORIN
     Indication: COLORECTAL CANCER METASTATIC
     Dosage: 650 MG, QCY
     Route: 042
     Dates: start: 20171108, end: 20171108
  20. PANTOPRAZOLE [Concomitant]
     Active Substance: PANTOPRAZOLE
     Dosage: 20 MG,QOD
     Route: 048
     Dates: start: 20170927
  21. MOVICOL [Concomitant]
     Active Substance: POLYETHYLENE GLYCOL 3350\POTASSIUM CHLORIDE\SODIUM BICARBONATE\SODIUM CHLORIDE
     Dosage: 13.8 G,QD
     Route: 048
     Dates: start: 20161109, end: 20180128

REACTIONS (3)
  - Hypocalcaemia [Not Recovered/Not Resolved]
  - General physical health deterioration [Recovered/Resolved]
  - Decreased appetite [Not Recovered/Not Resolved]

NARRATIVE: CASE EVENT DATE: 20171108
